FAERS Safety Report 11116597 (Version 1)
Quarter: 2015Q2

REPORT INFORMATION
  Report Type: Spontaneous
  Country: NL (occurrence: NL)
  Receive Date: 20150515
  Receipt Date: 20150515
  Transmission Date: 20150821
  Serious: Yes (Other)
  Sender: FDA-Public Use
  Company Number: NL-ELI_LILLY_AND_COMPANY-NL201505001859

PATIENT
  Age: 61 Year
  Sex: Female

DRUGS (1)
  1. ZYPADHERA [Suspect]
     Active Substance: OLANZAPINE PAMOATE
     Indication: PRODUCT USED FOR UNKNOWN INDICATION
     Dosage: 405 MG, EVERY 4 WEEKS
     Route: 030

REACTIONS (5)
  - Blood pressure increased [Not Recovered/Not Resolved]
  - Heart rate increased [Unknown]
  - Dizziness [Unknown]
  - Antisocial behaviour [Unknown]
  - Restlessness [Not Recovered/Not Resolved]

NARRATIVE: CASE EVENT DATE: 20150505
